FAERS Safety Report 15943436 (Version 1)
Quarter: 2019Q1

REPORT INFORMATION
  Report Type: Spontaneous
  Country: US (occurrence: US)
  Receive Date: 20190122
  Receipt Date: 20190122
  Transmission Date: 20190417
  Serious: Yes (Other)
  Sender: FDA-Public Use
  Company Number: None

PATIENT
  Age: 59 Year
  Sex: Female
  Weight: 113.4 kg

DRUGS (14)
  1. PROBIOTICS [Concomitant]
     Active Substance: PROBIOTICS NOS
  2. PRAMIPEXOLE. [Suspect]
     Active Substance: PRAMIPEXOLE
     Indication: RESTLESS LEGS SYNDROME
     Dosage: QUANTITY:0.5 - 4 PILLS;?
     Route: 048
     Dates: start: 2004
  3. MUCINEX [Concomitant]
     Active Substance: GUAIFENESIN
  4. FOLIC ACID. [Concomitant]
     Active Substance: FOLIC ACID
  5. SYMBICORT [Concomitant]
     Active Substance: BUDESONIDE\FORMOTEROL FUMARATE DIHYDRATE
  6. CARDIZEM [Concomitant]
     Active Substance: DILTIAZEM HYDROCHLORIDE
  7. FISH OIL [Concomitant]
     Active Substance: FISH OIL
  8. MAGNESIUM OIL [Concomitant]
  9. CBD SALVE [Concomitant]
  10. PANTOPRAZOLE [Concomitant]
     Active Substance: PANTOPRAZOLE
  11. SYNTHROX [Concomitant]
  12. PRAMIPEXOLE. [Suspect]
     Active Substance: PRAMIPEXOLE
     Dosage: ?          QUANTITY:1.5;?
     Route: 048
  13. XOPENEX (NEBULITZER) [Concomitant]
  14. MAGNESIUM [Concomitant]
     Active Substance: MAGNESIUM

REACTIONS (8)
  - Withdrawal syndrome [None]
  - Pain [None]
  - Drug dependence [None]
  - Condition aggravated [None]
  - Emotional disorder [None]
  - Depression [None]
  - Crying [None]
  - Restless legs syndrome [None]
